FAERS Safety Report 6367739-2 (Version None)
Quarter: 2009Q3

REPORT INFORMATION
  Report Type: 
  Country: None (occurrence: None)
  Receive Date: 20090921
  Receipt Date: 20090917
  Transmission Date: 20100115
  Serious: Yes (Death, Hospitalization)
  Sender: FDA-Public Use
  Company Number: PHHY2009MX34648

PATIENT
  Sex: Female

DRUGS (1)
  1. EXELON [Suspect]
     Indication: DEMENTIA ALZHEIMER'S TYPE
     Dosage: 1 PATCH (5CM2)/DAY
     Route: 062
     Dates: start: 20090701, end: 20090714

REACTIONS (5)
  - CEREBRAL HAEMORRHAGE [None]
  - EFFUSION [None]
  - MECHANICAL VENTILATION [None]
  - RESPIRATORY ARREST [None]
  - THROMBOSIS [None]
